FAERS Safety Report 9582637 (Version 1)
Quarter: 2013Q4

REPORT INFORMATION
  Report Type: Spontaneous
  Country: US (occurrence: US)
  Receive Date: 20131002
  Receipt Date: 20131002
  Transmission Date: 20140711
  Serious: No
  Sender: FDA-Public Use
  Company Number: US-AMGEN-USASP2013042314

PATIENT
  Age: 29 Year
  Sex: Female
  Weight: 90.7 kg

DRUGS (4)
  1. ENBREL [Suspect]
     Indication: PRODUCT USED FOR UNKNOWN INDICATION
     Dosage: 50 MG, 2 TIMES/WK
     Route: 058
  2. XANAX [Concomitant]
     Dosage: 2 MG, UNK
  3. ESTRADIOL [Concomitant]
     Dosage: 0.025 MG, UNK
  4. NUVIGIL [Concomitant]
     Dosage: 250 MG, UNK

REACTIONS (1)
  - Nasopharyngitis [Recovering/Resolving]
